FAERS Safety Report 7106168-0 (Version None)
Quarter: 2010Q4

REPORT INFORMATION
  Report Type: 
  Country: None (occurrence: None)
  Receive Date: 20101116
  Receipt Date: 20101108
  Transmission Date: 20110411
  Serious: Yes (Hospitalization, Other)
  Sender: FDA-Public Use
  Company Number: CHPA2010US17585

PATIENT
  Age: 63 Year
  Sex: Male
  Weight: 95.238 kg

DRUGS (3)
  1. EXCEDRIN (MIGRAINE) [Suspect]
     Indication: HEADACHE
     Dosage: 2 CAPLETS AT A TIME IN A DAY
     Route: 048
     Dates: start: 20100301, end: 20100101
  2. EXCEDRIN (MIGRAINE) [Suspect]
     Dosage: UNK , UNK
     Route: 048
  3. NIASPAN [Concomitant]

REACTIONS (2)
  - HEPATIC ENZYME ABNORMAL [None]
  - HIP ARTHROPLASTY [None]
